FAERS Safety Report 15654827 (Version 1)
Quarter: 2018Q4

REPORT INFORMATION
  Report Type: Spontaneous
  Country: US (occurrence: US)
  Receive Date: 20181126
  Receipt Date: 20181126
  Transmission Date: 20190205
  Serious: No
  Sender: FDA-Public Use
  Company Number: US-MALLINCKRODT-T201804013

PATIENT
  Sex: Female

DRUGS (1)
  1. DEXTROAMPHET SACCHARAT, AMPHET ASPARTATE, DEXTROAMPHET SULFATE AND AMPHET SULFAT [Suspect]
     Active Substance: AMPHETAMINE ASPARTATE\AMPHETAMINE SULFATE\DEXTROAMPHETAMINE SACCHARATE\DEXTROAMPHETAMINE SULFATE
     Indication: ATTENTION DEFICIT/HYPERACTIVITY DISORDER
     Dosage: 30 MG, BID
     Route: 048

REACTIONS (16)
  - Eructation [Unknown]
  - Migraine [Unknown]
  - Fatigue [Unknown]
  - Influenza like illness [Unknown]
  - Sinus disorder [Unknown]
  - Irritability [Unknown]
  - Poor quality sleep [Unknown]
  - Diarrhoea [Unknown]
  - Dyspepsia [Unknown]
  - Feeding disorder [Unknown]
  - Melatonin deficiency [Unknown]
  - Abnormal dreams [Unknown]
  - Paraesthesia [Unknown]
  - Contusion [Unknown]
  - Nausea [Unknown]
  - Constipation [Unknown]
